FAERS Safety Report 7740219-5 (Version None)
Quarter: 2011Q3

REPORT INFORMATION
  Report Type: 
  Country: None (occurrence: None)
  Receive Date: 20110909
  Receipt Date: 20110909
  Transmission Date: 20111222
  Serious: Yes (Other)
  Sender: FDA-Public Use
  Company Number: None

PATIENT
  Age: 57 Year
  Sex: Female
  Weight: 80.739 kg

DRUGS (3)
  1. HUMIRA [Suspect]
     Indication: RHEUMATOID ARTHRITIS
     Dosage: 40MG
     Route: 058
     Dates: start: 20110726, end: 20110809
  2. FOLIC ACID [Concomitant]
     Route: 048
  3. METHREXATE [Concomitant]
     Route: 048

REACTIONS (9)
  - FEELING ABNORMAL [None]
  - FATIGUE [None]
  - HEADACHE [None]
  - HYPERHIDROSIS [None]
  - FAECES DISCOLOURED [None]
  - VERTIGO [None]
  - DIZZINESS [None]
  - NAUSEA [None]
  - HYPERTENSIVE CRISIS [None]
